FAERS Safety Report 25807787 (Version 1)
Quarter: 2025Q3

REPORT INFORMATION
  Report Type: Spontaneous
  Country: US (occurrence: US)
  Receive Date: 20250916
  Receipt Date: 20250916
  Transmission Date: 20251021
  Serious: Yes (Other)
  Sender: Navitas Life Sciences Inc
  Company Number: US-ADVAGEN PHARMA LIMITED-ADGN-RB-2025-00090

PATIENT

DRUGS (2)
  1. OXCARBAZEPINE [Suspect]
     Active Substance: OXCARBAZEPINE
     Indication: Product used for unknown indication
     Route: 065
  2. LAMICTAL [Concomitant]
     Active Substance: LAMOTRIGINE
     Indication: Product used for unknown indication
     Route: 065

REACTIONS (3)
  - Tardive dyskinesia [Unknown]
  - Product quality issue [Unknown]
  - Somnolence [Unknown]
